FAERS Safety Report 10530412 (Version 1)
Quarter: 2014Q4

REPORT INFORMATION
  Report Type: Spontaneous
  Country: US (occurrence: None)
  Receive Date: 20141020
  Receipt Date: 20141020
  Transmission Date: 20150528
  Serious: Yes (Hospitalization)
  Sender: FDA-Public Use
  Company Number: None

PATIENT
  Age: 40 Year
  Sex: Female
  Weight: 53 kg

DRUGS (1)
  1. CIPRO [Suspect]
     Active Substance: CIPROFLOXACIN HYDROCHLORIDE
     Indication: ABSCESS
     Dosage: 2 PER DAY/2-3 WEEKS, TWICE DAILY, TAKEN BY MOUTH
     Route: 048
     Dates: start: 20091015, end: 20091031

REACTIONS (7)
  - Diarrhoea [None]
  - Tendon pain [None]
  - Tendon rupture [None]
  - Vertigo [None]
  - Asthenia [None]
  - Tinnitus [None]
  - Chills [None]

NARRATIVE: CASE EVENT DATE: 20091030
